FAERS Safety Report 15653804 (Version 1)
Quarter: 2018Q4

REPORT INFORMATION
  Report Type: Spontaneous
  Country: US (occurrence: US)
  Receive Date: 20181123
  Receipt Date: 20181123
  Transmission Date: 20190205
  Serious: Yes (Hospitalization, Disabling)
  Sender: FDA-Public Use
  Company Number: None

PATIENT
  Age: 31 Year
  Sex: Female
  Weight: 60.75 kg

DRUGS (13)
  1. SEROQUEL [Concomitant]
     Active Substance: QUETIAPINE FUMARATE
  2. NEBULIZER [Concomitant]
     Active Substance: DEVICE
  3. BROVANA [Concomitant]
     Active Substance: ARFORMOTEROL TARTRATE
  4. VITAMIN D [Concomitant]
     Active Substance: CHOLECALCIFEROL
  5. L-CARNATINE [Concomitant]
  6. ALBUTEROL TABLET 2MG [Suspect]
     Active Substance: ALBUTEROL
     Indication: ASTHMA
     Dosage: ?          QUANTITY:1 TABLET(S);?
     Route: 048
     Dates: start: 20170301, end: 20180325
  7. GABAPENTIN. [Concomitant]
     Active Substance: GABAPENTIN
  8. PULMECORT [Concomitant]
  9. VITAMIN B6 [Concomitant]
     Active Substance: PYRIDOXINE HYDROCHLORIDE
  10. BIOTIN [Concomitant]
     Active Substance: BIOTIN
  11. ALPHALOPIC ACID [Concomitant]
  12. TOPIRAMATE. [Concomitant]
     Active Substance: TOPIRAMATE
  13. CREATINE [Concomitant]
     Active Substance: CREATINE

REACTIONS (2)
  - Psychogenic seizure [None]
  - Dyspnoea [None]

NARRATIVE: CASE EVENT DATE: 20170626
